FAERS Safety Report 4731564-6 (Version None)
Quarter: 2005Q3

REPORT INFORMATION
  Report Type: 
  Country: None (occurrence: None)
  Receive Date: 20050720
  Receipt Date: 20050105
  Transmission Date: 20060218
  Serious: Yes (Other)
  Sender: FDA-Public Use
  Company Number: 2004236776US

PATIENT
  Age: 54 Year
  Sex: Female
  Weight: 80.7403 kg

DRUGS (4)
  1. SOMAVERT [Suspect]
     Indication: ACROMEGALY
     Dosage: SEE IMAGE
     Route: 058
  2. LEVOTHYROXINE SODIUM [Concomitant]
  3. CALCIUM CARBONATE (CALCIUM CARBONATE) [Concomitant]
  4. ERGOCALCIFEROL (ERGOCALCIFEROL) [Concomitant]

REACTIONS (3)
  - HYPERSENSITIVITY [None]
  - RASH [None]
  - URTICARIA [None]
